FAERS Safety Report 16956385 (Version 1)
Quarter: 2019Q4

REPORT INFORMATION
  Report Type: Spontaneous
  Country: US (occurrence: US)
  Receive Date: 20191024
  Receipt Date: 20191024
  Transmission Date: 20200122
  Serious: Yes (Death, Hospitalization)
  Sender: FDA-Public Use
  Company Number: US-SUN PHARMACEUTICAL INDUSTRIES LTD-2019R1-224757

PATIENT
  Age: 28 Year
  Sex: Male

DRUGS (1)
  1. BUPROPION. [Suspect]
     Active Substance: BUPROPION
     Indication: PRODUCT USED FOR UNKNOWN INDICATION
     Dosage: 30 PILLS, UNK
     Route: 065

REACTIONS (7)
  - Electrocardiogram QRS complex prolonged [Fatal]
  - Cardiac arrest [Fatal]
  - Completed suicide [Fatal]
  - Overdose [Fatal]
  - Status epilepticus [Fatal]
  - Electrocardiogram QT prolonged [Fatal]
  - Lethargy [Fatal]
